FAERS Safety Report 7021647-2 (Version None)
Quarter: 2010Q3

REPORT INFORMATION
  Report Type: 
  Country: None (occurrence: None)
  Receive Date: 20100929
  Receipt Date: 20100921
  Transmission Date: 20110219
  Serious: Yes (Other)
  Sender: FDA-Public Use
  Company Number: US-AMGEN-KDL435349

PATIENT
  Sex: Female
  Weight: 74.9 kg

DRUGS (12)
  1. ENBREL [Suspect]
     Indication: RHEUMATOID ARTHRITIS
     Route: 058
     Dates: start: 20100812
  2. ADVAIR DISKUS 100/50 [Concomitant]
     Route: 048
  3. BENICAR [Concomitant]
     Route: 048
  4. COUMADIN [Concomitant]
     Route: 048
  5. DYAZIDE [Concomitant]
     Route: 048
  6. MULTI-VITAMINS [Concomitant]
     Route: 048
  7. NEXIUM [Concomitant]
     Route: 048
  8. PREDNISONE [Concomitant]
     Route: 048
  9. DOFETILIDE [Concomitant]
     Route: 048
  10. TOPROL-XL [Concomitant]
     Route: 048
  11. ULTRAM [Concomitant]
     Route: 048
  12. CARDIZEM CD [Concomitant]
     Route: 048

REACTIONS (5)
  - ARTHRALGIA [None]
  - BLOOD PRESSURE INADEQUATELY CONTROLLED [None]
  - INJECTION SITE HAEMATOMA [None]
  - JOINT SWELLING [None]
  - TACHYCARDIA PAROXYSMAL [None]
